FAERS Safety Report 9180654 (Version 1)
Quarter: 2013Q1

REPORT INFORMATION
  Report Type: Spontaneous
  Country: LB (occurrence: None)
  Receive Date: 20130320
  Receipt Date: 20130320
  Transmission Date: 20140127
  Serious: Yes (Hospitalization)
  Sender: FDA-Public Use
  Company Number: SYM-2013-01678

PATIENT
  Age: 44 Year
  Sex: Male

DRUGS (10)
  1. 5-FU (FLUOROURACIL) [Suspect]
     Indication: COLON CANCER METASTATIC
     Dates: start: 20130103, end: 20130103
  2. ZALTRAP [Suspect]
     Indication: COLON CANCER METASTATIC
     Dates: start: 20130103, end: 20130103
  3. IRINOTECAN [Suspect]
     Indication: COLON CANCER METASTATIC
     Dates: start: 20130103, end: 20130103
  4. LEUCOVORIN [Suspect]
     Indication: COLON CANCER METASTATIC
     Dates: start: 20130103, end: 20130103
  5. KYTRIL [Concomitant]
  6. CONCOR [Concomitant]
  7. AMLOR [Concomitant]
  8. NOVORAPID [Concomitant]
  9. MOTILIUM (DOMPERIDONE) [Concomitant]
  10. GASTRIMUT (OMEPRAZOLE) [Concomitant]

REACTIONS (1)
  - Central nervous system lesion [None]
